FAERS Safety Report 17769159 (Version 1)
Quarter: 2020Q2

REPORT INFORMATION
  Report Type: Spontaneous
  Country: US (occurrence: US)
  Receive Date: 20200512
  Receipt Date: 20200512
  Transmission Date: 20200714
  Serious: Yes (Hospitalization)
  Sender: FDA-Public Use
  Company Number: US-ROCHE-2596587

PATIENT
  Age: 56 Year
  Sex: Female

DRUGS (1)
  1. ERIVEDGE [Suspect]
     Active Substance: VISMODEGIB
     Indication: BASAL CELL CARCINOMA
     Dosage: ONGOING: YES: ORAL DAILY
     Route: 048
     Dates: start: 20200401

REACTIONS (5)
  - Blood glucose increased [Unknown]
  - Product dose omission [Unknown]
  - Immunodeficiency [Unknown]
  - Blood pressure increased [Unknown]
  - Cardiac disorder [Unknown]

NARRATIVE: CASE EVENT DATE: 20200428
